FAERS Safety Report 6399180-0 (Version None)
Quarter: 2009Q4

REPORT INFORMATION
  Report Type: 
  Country: None (occurrence: None)
  Receive Date: 20091008
  Receipt Date: 20090924
  Transmission Date: 20100525
  Serious: Yes (Other)
  Sender: FDA-Public Use
  Company Number: DSA_41628_2009

PATIENT
  Sex: Male

DRUGS (5)
  1. BUPROPION HCL [Suspect]
     Indication: DEPRESSION
     Dosage: (300 MG QD ORAL)
     Route: 048
     Dates: start: 20080514, end: 20090603
  2. CLOZAPINE [Concomitant]
  3. QUETIAPINE FUMARATE [Concomitant]
  4. DOXEPIN HCL [Concomitant]
  5. PROTHIPENDYL HYDROCHLORIDE [Concomitant]

REACTIONS (6)
  - DISORIENTATION [None]
  - EPILEPSY [None]
  - LACERATION [None]
  - LOSS OF CONSCIOUSNESS [None]
  - SOMNOLENCE [None]
  - SYNCOPE [None]
